FAERS Safety Report 6174798-9 (Version None)
Quarter: 2009Q2

REPORT INFORMATION
  Report Type: 
  Country: None (occurrence: None)
  Receive Date: 20090430
  Receipt Date: 20080929
  Transmission Date: 20091009
  Serious: No
  Sender: FDA-Public Use
  Company Number: US-ASTRAZENECA-2008UW20706

PATIENT
  Age: 76 Year
  Sex: Female
  Weight: 63.5 kg

DRUGS (14)
  1. NEXIUM [Suspect]
     Indication: GASTROOESOPHAGEAL REFLUX DISEASE
     Route: 048
     Dates: start: 20010101
  2. NEXIUM [Suspect]
     Indication: HIATUS HERNIA
     Route: 048
     Dates: start: 20010101
  3. UNITHROID [Concomitant]
  4. VIT A [Concomitant]
  5. VITAMIN E [Concomitant]
  6. ASCORBIC ACID [Concomitant]
  7. ZINC [Concomitant]
  8. VITAMIN B COMPLEX CAP [Concomitant]
  9. FOLIC ACID [Concomitant]
  10. CALCIUM [Concomitant]
  11. METAMUCIL [Concomitant]
  12. PREDNISONE [Concomitant]
  13. TENORETIC 50 [Concomitant]
  14. METHOTREXATE [Concomitant]
     Dates: end: 20080919

REACTIONS (4)
  - CARPAL TUNNEL SYNDROME [None]
  - EMPHYSEMA [None]
  - RHEUMATOID ARTHRITIS [None]
  - TENDONITIS [None]
